FAERS Safety Report 9010204 (Version 1)
Quarter: 2013Q1

REPORT INFORMATION
  Report Type: Spontaneous
  Country: US (occurrence: US)
  Receive Date: 20130110
  Receipt Date: 20130110
  Transmission Date: 20140127
  Serious: Yes (Other)
  Sender: FDA-Public Use
  Company Number: US-INCYTE CORPORATION-2012IN001755

PATIENT
  Age: 76 Year
  Sex: Female

DRUGS (9)
  1. JAKAFI [Suspect]
     Indication: MYELOFIBROSIS
     Dosage: 15 MG, QD
     Route: 048
     Dates: start: 20120807, end: 20120906
  2. JAKAFI [Suspect]
     Dosage: 15 MG, QD
     Route: 048
     Dates: start: 201209, end: 20120918
  3. JAKAFI [Suspect]
     Dosage: 7.5 MG, QD (ONE-HALF 15 MG TABLET)
     Route: 048
     Dates: start: 20120929, end: 20121122
  4. FOLIC ACID [Concomitant]
  5. ALLOPURINOL [Concomitant]
  6. LEVOTHYROXINE [Concomitant]
  7. METOPROLOL [Concomitant]
  8. MECLIZINE [Concomitant]
  9. AMITRIPTYLINE [Concomitant]

REACTIONS (4)
  - Syncope [Unknown]
  - Thrombocytopenia [Not Recovered/Not Resolved]
  - Medication error [Unknown]
  - Haemoglobin decreased [Unknown]
